FAERS Safety Report 25939316 (Version 1)
Quarter: 2025Q4

REPORT INFORMATION
  Report Type: Spontaneous
  Country: US (occurrence: US)
  Receive Date: 20251020
  Receipt Date: 20251020
  Transmission Date: 20260118
  Serious: No
  Sender: ALEXION PHARMACEUTICALS
  Company Number: US-AstraZeneca-CH-00969792AP

PATIENT
  Sex: Female

DRUGS (2)
  1. BREZTRI [Suspect]
     Active Substance: BUDESONIDE\FORMOTEROL\GLYCOPYRROLATE
     Route: 065
  2. SYMBICORT [Suspect]
     Active Substance: BUDESONIDE\FORMOTEROL FUMARATE DIHYDRATE
     Route: 065

REACTIONS (9)
  - Frustration tolerance decreased [Unknown]
  - Accidental exposure to product [Unknown]
  - Drug delivery system issue [Unknown]
  - Device issue [Unknown]
  - Therapy change [Unknown]
  - Condition aggravated [Unknown]
  - Therapy change [Unknown]
  - Device malfunction [Unknown]
  - Wrong technique in product usage process [Unknown]
